FAERS Safety Report 25846554 (Version 1)
Quarter: 2025Q3

REPORT INFORMATION
  Report Type: Spontaneous
  Country: US (occurrence: None)
  Receive Date: 20250924
  Receipt Date: 20250924
  Transmission Date: 20251020
  Serious: Yes (Hospitalization)
  Sender: FDA-CTU
  Company Number: None

PATIENT
  Age: 64 Year
  Sex: Female
  Weight: 47.4 kg

DRUGS (12)
  1. TOBRAMYCIN [Suspect]
     Active Substance: TOBRAMYCIN
     Dosage: FREQUENCY : TWICE A DAY;?OTHER ROUTE : NEBULIZATION;?
     Route: 050
     Dates: start: 20220712
  2. CREON [Suspect]
     Active Substance: PANCRELIPASE AMYLASE\PANCRELIPASE LIPASE\PANCRELIPASE PROTEASE
     Indication: Cystic fibrosis
     Dosage: OTHER QUANTITY : 15 CAPSULES;?FREQUENCY : DAILY;?
     Route: 048
     Dates: start: 20200401
  3. KETOTIFEN [Concomitant]
     Active Substance: KETOTIFEN
  4. CELECOXIB [Concomitant]
     Active Substance: CELECOXIB
  5. PROMETHAZINE DM [Concomitant]
     Active Substance: DEXTROMETHORPHAN HYDROBROMIDE\PROMETHAZINE HYDROCHLORIDE
  6. OMEPRAZOLE [Concomitant]
     Active Substance: OMEPRAZOLE
  7. ADVAIR DISKUS [Concomitant]
     Active Substance: FLUTICASONE PROPIONATE\SALMETEROL XINAFOATE
  8. FLUTICASONE [Concomitant]
     Active Substance: FLUTICASONE
  9. GABAPENTIN [Concomitant]
     Active Substance: GABAPENTIN
  10. MONTELUKAST [Concomitant]
     Active Substance: MONTELUKAST
  11. XOPENEX HFA [Concomitant]
     Active Substance: LEVALBUTEROL TARTRATE
  12. HYPERSAL 3.5% NEBULIZER SOL [Concomitant]

REACTIONS (3)
  - Therapy interrupted [None]
  - Pneumonia [None]
  - Lethargy [None]

NARRATIVE: CASE EVENT DATE: 20250919
